FAERS Safety Report 8591500-1 (Version None)
Quarter: 2012Q3

REPORT INFORMATION
  Report Type: 
  Country: None (occurrence: None)
  Receive Date: 20120801
  Receipt Date: 20120730
  Transmission Date: 20120928
  Serious: Yes (Hospitalization, Disabling)
  Sender: FDA-Public Use
  Company Number: SP05854

PATIENT
  Age: 76 Year
  Sex: Male
  Weight: 51.6647 kg

DRUGS (1)
  1. XIFAXAN [Suspect]
     Indication: HEPATIC ENCEPHALOPATHY
     Dosage: ORAL
     Route: 048
     Dates: start: 20120615

REACTIONS (3)
  - ORAL MUCOSAL ERYTHEMA [None]
  - STOMATITIS [None]
  - DEHYDRATION [None]
